FAERS Safety Report 5048438-6 (Version None)
Quarter: 2006Q3

REPORT INFORMATION
  Report Type: 
  Country: None (occurrence: None)
  Receive Date: 20060703
  Receipt Date: 20060620
  Transmission Date: 20061208
  Serious: Yes (Death, Other)
  Sender: FDA-Public Use
  Company Number: USA-2006-0024403

PATIENT
  Age: 20 Year
  Sex: Male

DRUGS (4)
  1. OXYCODONE HYDROCHLORIDE [Suspect]
     Indication: DRUG USE FOR UNKNOWN INDICATION
  2. PERCOCET [Suspect]
     Indication: DRUG USE FOR UNKNOWN INDICATION
  3. MARJUANA (CANNABIS) [Suspect]
     Indication: DRUG USE FOR UNKNOWN INDICATION
  4. HEROIN (DIAMORPHINE) [Suspect]
     Indication: DRUG USE FOR UNKNOWN INDICATION

REACTIONS (7)
  - ACCIDENTAL DEATH [None]
  - ANOREXIA [None]
  - DRUG DEPENDENCE [None]
  - DRUG TOXICITY [None]
  - NEGLECT OF PERSONAL APPEARANCE [None]
  - OVERDOSE [None]
  - SUBSTANCE ABUSE [None]
